FAERS Safety Report 4764158-7 (Version None)
Quarter: 2005Q3

REPORT INFORMATION
  Report Type: 
  Country: None (occurrence: None)
  Receive Date: 20050906
  Receipt Date: 20050627
  Transmission Date: 20060218
  Serious: No
  Sender: FDA-Public Use
  Company Number: 2005-BP-10843BP

PATIENT
  Age: 65 Year
  Sex: Female

DRUGS (5)
  1. SPIRIVA [Suspect]
     Indication: BRONCHITIS
     Dosage: 18 MCG (18 MCG, QD), IH
     Route: 055
     Dates: start: 20050624
  2. NAVANE [Concomitant]
  3. COGENTIN [Concomitant]
  4. XANAX [Concomitant]
  5. RESTORIL [Concomitant]

REACTIONS (2)
  - COUGH [None]
  - PRODUCTIVE COUGH [None]
